FAERS Safety Report 7457293-6 (Version None)
Quarter: 2011Q1

REPORT INFORMATION
  Report Type: 
  Country: None (occurrence: None)
  Receive Date: 20110302
  Receipt Date: 20101206
  Transmission Date: 20110831
  Serious: No
  Sender: FDA-Public Use
  Company Number: 023641

PATIENT
  Age: 37 Year
  Sex: Male

DRUGS (1)
  1. CIMZIA [Suspect]
     Indication: CROHN'S DISEASE
     Dosage: (400 MG 1X/2 WEEKS, PFS (PRE FILLED SYRINGE) SUBCUTANEOUS)
     Route: 058
     Dates: start: 20101202

REACTIONS (1)
  - UPPER RESPIRATORY TRACT INFECTION [None]
